FAERS Safety Report 18152311 (Version 1)
Quarter: 2020Q3

REPORT INFORMATION
  Report Type: Spontaneous
  Country: BR (occurrence: BR)
  Receive Date: 20200814
  Receipt Date: 20200814
  Transmission Date: 20201103
  Serious: Yes (Death, Hospitalization, Other)
  Sender: FDA-Public Use
  Company Number: BR-ASTRAZENECA-2020SE88521

PATIENT
  Age: 46 Year
  Sex: Female

DRUGS (4)
  1. DIPYRONE [Concomitant]
     Active Substance: DIPYRONE
  2. METHADONE [Concomitant]
     Active Substance: METHADONE HYDROCHLORIDE
  3. PAMIDRONATO [Concomitant]
     Active Substance: PAMIDRONATE DISODIUM
  4. FASLODEX [Suspect]
     Active Substance: FULVESTRANT
     Indication: BREAST CANCER METASTATIC
     Dosage: 250 MG 1 SYRINGE EVERY 28 DAYS
     Route: 030
     Dates: start: 202005

REACTIONS (3)
  - Toxicity to various agents [Unknown]
  - Jaundice [Fatal]
  - Hepatic failure [Fatal]

NARRATIVE: CASE EVENT DATE: 202007
